FAERS Safety Report 8029832-8 (Version None)
Quarter: 2012Q1

REPORT INFORMATION
  Report Type: 
  Country: None (occurrence: None)
  Receive Date: 20120106
  Receipt Date: 20120106
  Transmission Date: 20120608
  Serious: Yes (Other)
  Sender: FDA-Public Use
  Company Number: None

PATIENT
  Age: 49 Year
  Sex: Female

DRUGS (3)
  1. LEFLUNOMIDE [Suspect]
     Dates: start: 20091016, end: 20091028
  2. INH [Suspect]
     Dates: start: 20091015, end: 20091206
  3. ANAKINRA [Suspect]
     Dates: start: 20091119, end: 20091206

REACTIONS (14)
  - GALLBLADDER DISORDER [None]
  - DYSPNOEA [None]
  - ABDOMINAL PAIN [None]
  - VOMITING [None]
  - FAECES DISCOLOURED [None]
  - CHROMATURIA [None]
  - DECREASED APPETITE [None]
  - H1N1 INFLUENZA [None]
  - BLOOD BILIRUBIN INCREASED [None]
  - CHEST PAIN [None]
  - NAUSEA [None]
  - ASPARTATE AMINOTRANSFERASE INCREASED [None]
  - ALANINE AMINOTRANSFERASE INCREASED [None]
  - BILIRUBIN CONJUGATED INCREASED [None]
